FAERS Safety Report 11358447 (Version 1)
Quarter: 2015Q3

REPORT INFORMATION
  Report Type: Spontaneous
  Country: US (occurrence: US)
  Receive Date: 20150803
  Receipt Date: 20150803
  Transmission Date: 20151125
  Serious: No
  Sender: FDA-Public Use
  Company Number: US-ELI_LILLY_AND_COMPANY-US200707002188

PATIENT
  Sex: Female

DRUGS (2)
  1. STRATTERA [Suspect]
     Active Substance: ATOMOXETINE HYDROCHLORIDE
     Indication: ATTENTION DEFICIT/HYPERACTIVITY DISORDER
     Dosage: 60 MG, 2/D
     Route: 048
     Dates: end: 200707
  2. STRATTERA [Suspect]
     Active Substance: ATOMOXETINE HYDROCHLORIDE
     Dosage: 60 MG, 2/D
     Route: 048
     Dates: start: 20070713

REACTIONS (4)
  - Disturbance in attention [Recovering/Resolving]
  - Tachyphrenia [Recovering/Resolving]
  - Palpitations [Recovered/Resolved]
  - Communication disorder [Recovering/Resolving]

NARRATIVE: CASE EVENT DATE: 200707
